FAERS Safety Report 4698592-0 (Version None)
Quarter: 2005Q2

REPORT INFORMATION
  Report Type: 
  Country: None (occurrence: None)
  Receive Date: 20050622
  Receipt Date: 20050608
  Transmission Date: 20051028
  Serious: Yes (Hospitalization)
  Sender: FDA-Public Use
  Company Number: 200506IM000225

PATIENT
  Age: 49 Year
  Sex: Male
  Weight: 108.4097 kg

DRUGS (3)
  1. INFERGEN [Suspect]
     Indication: HEPATITIS C
     Dosage: 15 UG, QD, SUBCUTANEOUS
     Route: 058
     Dates: start: 20040920, end: 20041211
  2. ACTIMMUNE [Suspect]
     Indication: HEPATITIS C
     Dosage: 50 UG, TIW, SUBCUTANEOUS
     Route: 058
     Dates: start: 20040920, end: 20041211
  3. RIBAVIRIN [Concomitant]

REACTIONS (1)
  - PULMONARY EMBOLISM [None]
